FAERS Safety Report 6600820-9 (Version None)
Quarter: 2010Q1

REPORT INFORMATION
  Report Type: 
  Country: None (occurrence: None)
  Receive Date: 20100223
  Receipt Date: 20100223
  Transmission Date: 20100710
  Serious: No
  Sender: FDA-Public Use
  Company Number: None

PATIENT
  Age: 27 Year
  Sex: Female
  Weight: 79.3795 kg

DRUGS (1)
  1. DEPO-PROVERA [Suspect]
     Indication: OVARIAN CYST
     Dosage: 3 MONTHS

REACTIONS (12)
  - ARTHRALGIA [None]
  - BACK PAIN [None]
  - BONE PAIN [None]
  - DEPRESSION [None]
  - HEADACHE [None]
  - HYPOAESTHESIA [None]
  - LOSS OF LIBIDO [None]
  - METRORRHAGIA [None]
  - MOOD SWINGS [None]
  - NIGHT SWEATS [None]
  - PANIC ATTACK [None]
  - VULVOVAGINAL DRYNESS [None]
